FAERS Safety Report 14861970 (Version 1)
Quarter: 2018Q2

REPORT INFORMATION
  Report Type: Spontaneous
  Country: US (occurrence: US)
  Receive Date: 20180508
  Receipt Date: 20180508
  Transmission Date: 20180711
  Serious: Yes (Other)
  Sender: FDA-Public Use
  Company Number: US-SA-2018SA122424

PATIENT
  Age: 62 Year
  Sex: Female

DRUGS (2)
  1. PRALUENT [Suspect]
     Active Substance: ALIROCUMAB
     Indication: BLOOD CHOLESTEROL
     Route: 058
     Dates: start: 20180309
  2. ALIROCUMAB PREFILLED PEN [Suspect]
     Active Substance: ALIROCUMAB
     Indication: BLOOD CHOLESTEROL
     Dates: start: 20180309

REACTIONS (7)
  - Hypoaesthesia [Unknown]
  - Lymph gland infection [Unknown]
  - Asthenia [Unknown]
  - Cyst [Unknown]
  - Ear pain [Not Recovered/Not Resolved]
  - Ear pruritus [Unknown]
  - Ear discomfort [Unknown]
